FAERS Safety Report 13876904 (Version 1)
Quarter: 2017Q3

REPORT INFORMATION
  Report Type: Spontaneous
  Country: US (occurrence: US)
  Receive Date: 20170817
  Receipt Date: 20170817
  Transmission Date: 20171127
  Serious: Yes (Death)
  Sender: FDA-Public Use
  Company Number: US-ROCHE-1979430

PATIENT
  Age: 57 Year
  Sex: Female
  Weight: 52.21 kg

DRUGS (2)
  1. ALOXI [Concomitant]
     Active Substance: PALONOSETRON HYDROCHLORIDE
     Indication: ENDOMETRIAL CANCER
     Route: 042
     Dates: start: 20170503
  2. AVASTIN [Suspect]
     Active Substance: BEVACIZUMAB
     Indication: ENDOMETRIAL CANCER
     Route: 042
     Dates: start: 20151211

REACTIONS (1)
  - Death [Fatal]

NARRATIVE: CASE EVENT DATE: 20170723
